FAERS Safety Report 8519022-4 (Version None)
Quarter: 2012Q3

REPORT INFORMATION
  Report Type: 
  Country: None (occurrence: None)
  Receive Date: 20120718
  Receipt Date: 20120711
  Transmission Date: 20120928
  Serious: Yes (Other)
  Sender: FDA-Public Use
  Company Number: PHHY2012PL059586

PATIENT
  Age: 24 Year
  Sex: Male

DRUGS (27)
  1. MAGNESIUM SULFATE [Concomitant]
  2. AMIODARONE HCL [Concomitant]
  3. CEFAZOLIN [Concomitant]
  4. METOCLOPRAMIDE [Suspect]
     Dosage: 10 MG, UNK
  5. PIRACETAM [Concomitant]
  6. DEXAVEN [Concomitant]
  7. FENTANYL [Concomitant]
  8. METOCLOPRAMIDE [Suspect]
     Dosage: 10 MG, BID
     Route: 042
  9. POTASSIUM CHLORIDE [Concomitant]
  10. FUROSEMIDE [Concomitant]
  11. TRILAC [Concomitant]
  12. MANNITOL [Concomitant]
  13. PANTOPRAZOLE [Concomitant]
  14. CLINDAMYCIN [Concomitant]
  15. PLASMA [Concomitant]
  16. METOCLOPRAMIDE [Suspect]
     Dosage: 40 MG, BID
     Route: 042
  17. METOCLOPRAMIDE [Suspect]
     Dosage: 20 MG, BID
     Route: 042
  18. HALOPERIDOL [Suspect]
     Dosage: 5 GTT, UNK
     Route: 048
  19. METOPROLOL SUCCINATE [Concomitant]
  20. MIDAZOLAM [Concomitant]
  21. HALOPERIDOL [Suspect]
     Dosage: 12 GTT, UNK
     Route: 048
  22. PROMAZINE HYDROCHLORIDE [Suspect]
     Dosage: 100 MG, UNK
     Route: 030
  23. NITROGLYCERIN [Concomitant]
  24. HEPARIN [Concomitant]
  25. AMIKACIN [Concomitant]
  26. PLATELETS [Concomitant]
  27. GLUCOSE [Concomitant]

REACTIONS (12)
  - ANXIETY [None]
  - MYDRIASIS [None]
  - PSYCHOMOTOR HYPERACTIVITY [None]
  - DYSTONIA [None]
  - TREMOR [None]
  - DYSKINESIA [None]
  - DYSARTHRIA [None]
  - FEAR [None]
  - EXTRAPYRAMIDAL DISORDER [None]
  - JOINT DISLOCATION [None]
  - TACHYCARDIA [None]
  - HYPERHIDROSIS [None]
